FAERS Safety Report 25852974 (Version 1)
Quarter: 2025Q3

REPORT INFORMATION
  Report Type: Spontaneous
  Country: TH (occurrence: TH)
  Receive Date: 20250926
  Receipt Date: 20250926
  Transmission Date: 20251021
  Serious: Yes (Other)
  Sender: MERCK SHARP & DOHME LLC
  Company Number: TH-009507513-2331322

PATIENT
  Age: 34 Year
  Sex: Male

DRUGS (3)
  1. KEYTRUDA [Suspect]
     Active Substance: PEMBROLIZUMAB
     Indication: Adenocarcinoma gastric
  2. CAPECITABINE\OXALIPLATIN [Suspect]
     Active Substance: CAPECITABINE\OXALIPLATIN
     Indication: Adenocarcinoma gastric
  3. TRASTUZUMAB [Suspect]
     Active Substance: TRASTUZUMAB
     Indication: Adenocarcinoma gastric

REACTIONS (5)
  - Neuropathy peripheral [Unknown]
  - Immune-mediated hypothyroidism [Unknown]
  - Dermatitis acneiform [Unknown]
  - Malignant neoplasm progression [Unknown]
  - Helicobacter test positive [Unknown]
